FAERS Safety Report 6558688-5 (Version None)
Quarter: 2010Q1

REPORT INFORMATION
  Report Type: 
  Country: None (occurrence: None)
  Receive Date: 20100128
  Receipt Date: 20100128
  Transmission Date: 20100710
  Serious: Yes (Hospitalization)
  Sender: FDA-Public Use
  Company Number: None

PATIENT
  Age: 44 Year
  Sex: Male
  Weight: 95 kg

DRUGS (6)
  1. VALPROIC ACID [Suspect]
     Indication: RECTAL CANCER METASTATIC
     Dosage: 2 CAPSULES QID PO
     Route: 048
     Dates: start: 20091123, end: 20100126
  2. VALPROIC ACID [Suspect]
     Indication: RECTAL CANCER STAGE IV
     Dosage: 2 CAPSULES QID PO
     Route: 048
     Dates: start: 20091123, end: 20100126
  3. HYDRALAZINE HCL [Suspect]
     Dosage: 2 CAPSULES ONCE DAILY PO
     Route: 048
     Dates: start: 20091207, end: 20100126
  4. NEUTRONTIN [Concomitant]
  5. MORPHINE SULFATE [Suspect]
  6. GUAIFENESIN-HYDROCODONE [Concomitant]

REACTIONS (2)
  - TESTICULAR PAIN [None]
  - TESTICULAR SWELLING [None]
